FAERS Safety Report 23077968 (Version 1)
Quarter: 2023Q4

REPORT INFORMATION
  Report Type: Spontaneous
  Country: US (occurrence: US)
  Receive Date: 20231018
  Receipt Date: 20231018
  Transmission Date: 20240109
  Serious: No
  Sender: FDA-Public Use
  Company Number: US-ABBVIE-5454906

PATIENT
  Age: 80 Year

DRUGS (1)
  1. HUMIRA [Suspect]
     Active Substance: ADALIMUMAB
     Indication: Product used for unknown indication
     Route: 058
     Dates: start: 202304

REACTIONS (2)
  - Pruritus [Not Recovered/Not Resolved]
  - Wound complication [Unknown]

NARRATIVE: CASE EVENT DATE: 20230101
